FAERS Safety Report 4642829-0 (Version None)
Quarter: 2005Q2

REPORT INFORMATION
  Report Type: 
  Country: None (occurrence: None)
  Receive Date: 20050421
  Receipt Date: 20050411
  Transmission Date: 20051028
  Serious: Yes (Hospitalization)
  Sender: FDA-Public Use
  Company Number: FR-2005-005581

PATIENT
  Age: 82 Year
  Sex: Female

DRUGS (1)
  1. SOTALOL HCL [Suspect]
     Dates: start: 20000101, end: 20041231

REACTIONS (2)
  - OEDEMA PERIPHERAL [None]
  - SCLERODERMA [None]
